FAERS Safety Report 4578583-0 (Version None)
Quarter: 2005Q1

REPORT INFORMATION
  Report Type: 
  Country: None (occurrence: None)
  Receive Date: 20050209
  Receipt Date: 20050202
  Transmission Date: 20050727
  Serious: Yes (Life-Threatening)
  Sender: FDA-Public Use
  Company Number: 2005-124866-NL

PATIENT
  Age: 93 Year
  Sex: Female

DRUGS (4)
  1. MIRTAZAPINE [Suspect]
     Dosage: 8 MG
     Dates: end: 20020412
  2. QUETIAPINE FUMARATE [Suspect]
     Dosage: 75 MG
     Dates: start: 20020301, end: 20020412
  3. PIPAMPERONE HYDROCHLORIDE [Suspect]
     Dosage: 100 MG
     Dates: start: 20020301, end: 20020412
  4. ROFECOXIB [Suspect]
     Dosage: 25 MG
     Dates: start: 20020301, end: 20020429

REACTIONS (5)
  - DELIRIUM [None]
  - DRUG INTERACTION [None]
  - HALLUCINATIONS, MIXED [None]
  - REFUSAL OF TREATMENT BY PATIENT [None]
  - RESTLESSNESS [None]
